FAERS Safety Report 8625914-8 (Version None)
Quarter: 2012Q3

REPORT INFORMATION
  Report Type: 
  Country: None (occurrence: None)
  Receive Date: 20120827
  Receipt Date: 20120822
  Transmission Date: 20120928
  Serious: Yes (Other)
  Sender: FDA-Public Use
  Company Number: US-PFIZER INC-2012207569

PATIENT
  Age: 61 Year
  Sex: Female
  Weight: 74.83 kg

DRUGS (5)
  1. ADVIL [Suspect]
     Indication: HEADACHE
     Dosage: UNK, AS NEEDED
     Dates: start: 19970101
  2. ZOLOFT [Concomitant]
     Indication: DEPRESSION
     Dosage: ^125MG^ DAILY
  3. ADVIL [Suspect]
     Indication: PAIN
  4. RELPAX [Suspect]
     Indication: MIGRAINE
     Dosage: 40MG+20MG OR UNK DOSE/8 TO 12 HRS, AS NEEDED
  5. KLONOPIN [Concomitant]
     Indication: ANXIETY
     Dosage: 1MG DAILY

REACTIONS (1)
  - COELIAC DISEASE [None]
